FAERS Safety Report 18319415 (Version 1)
Quarter: 2020Q3

REPORT INFORMATION
  Report Type: Spontaneous
  Country: IN (occurrence: IN)
  Receive Date: 20200928
  Receipt Date: 20200928
  Transmission Date: 20201103
  Serious: Yes (Death, Hospitalization, Other)
  Sender: FDA-Public Use
  Company Number: IN-NORTHSTAR HEALTHCARE HOLDINGS-IN-2020NSR000021

PATIENT
  Age: 65 Year
  Sex: Female

DRUGS (1)
  1. ALLOPURINOL. [Suspect]
     Active Substance: ALLOPURINOL
     Indication: GOUT
     Dosage: UNK
     Route: 065
     Dates: start: 201809

REACTIONS (5)
  - Hypoplastic anaemia [Fatal]
  - Sepsis [Fatal]
  - Leukopenia [Fatal]
  - Multiple organ dysfunction syndrome [Fatal]
  - Aplastic anaemia [Fatal]

NARRATIVE: CASE EVENT DATE: 2019
